FAERS Safety Report 8381578-2 (Version None)
Quarter: 2012Q2

REPORT INFORMATION
  Report Type: 
  Country: None (occurrence: None)
  Receive Date: 20120523
  Receipt Date: 20120514
  Transmission Date: 20120825
  Serious: Yes (Life-Threatening, Hospitalization, Other)
  Sender: FDA-Public Use
  Company Number: US-MYLANLABS-2009AL002256

PATIENT
  Sex: Male
  Weight: 74.84 kg

DRUGS (61)
  1. COZAAR [Concomitant]
  2. CIPROFLOXACIN [Concomitant]
  3. WARFARIN SODIUM [Concomitant]
  4. BUMEX [Concomitant]
  5. ASPIRIN [Concomitant]
  6. HYZAAR [Concomitant]
  7. PRAVACHOL [Concomitant]
  8. ACETAMINOPHEN W/ CODEINE [Concomitant]
  9. TRANXENE [Concomitant]
  10. PREVACID [Concomitant]
  11. BETAPACE [Concomitant]
  12. BROVANA [Concomitant]
  13. PROCTOSOL [Concomitant]
  14. FUROSEMIDE [Concomitant]
  15. MIRTAZAPINE [Concomitant]
  16. POTASSIUM CHLORIDE [Concomitant]
  17. ZOCOR [Concomitant]
  18. LOSARTAN POTASSIUM [Concomitant]
  19. MIRALAX /00754501/ [Concomitant]
  20. RISPERDAL [Concomitant]
  21. KLOR-CON [Concomitant]
  22. ADVAIR DISKUS 100/50 [Concomitant]
  23. CLARITHROMYCIN [Concomitant]
  24. SPIRIVA [Concomitant]
  25. LORAZEPAM [Concomitant]
  26. LOPID [Concomitant]
  27. PAXIL [Concomitant]
  28. NITROGLYCERIN [Concomitant]
  29. ZOLPIDEM [Concomitant]
  30. CEPHALEXIN [Concomitant]
  31. ALLOPURINOL [Concomitant]
  32. PROTONIX [Concomitant]
  33. REMERON [Concomitant]
  34. COREG [Concomitant]
  35. KEFLEX [Concomitant]
  36. FLOMAX [Concomitant]
  37. PRAVASTATIN [Concomitant]
  38. CARVEDILOL [Concomitant]
  39. BIAXIN [Concomitant]
  40. ORETIC [Concomitant]
  41. ZETIA [Concomitant]
  42. SIMVASTATIN [Concomitant]
  43. ISOSORBIDE DINITRATE [Concomitant]
  44. AMOXICILLIN [Concomitant]
  45. AZITHROMYCIN [Concomitant]
  46. HEPARIN [Concomitant]
  47. ETHMOZINE [Concomitant]
  48. MONOPRIL [Concomitant]
  49. PLAVIX [Concomitant]
  50. FLONASE [Concomitant]
  51. DIGOXIN [Suspect]
     Indication: CARDIAC DISORDER
     Route: 048
     Dates: start: 19930104, end: 20090626
  52. NITRO-BID [Concomitant]
  53. COUMADIN [Concomitant]
  54. SEROQUEL [Concomitant]
  55. HALOPERIDOL [Concomitant]
  56. ASPIRIN [Concomitant]
  57. SOTALOL HCL [Concomitant]
  58. SPIRONOLACTONE [Concomitant]
  59. AVAPRO [Concomitant]
  60. MEGESTROL ACETATE [Concomitant]
  61. ALBUTEROL [Concomitant]

REACTIONS (138)
  - DYSPNOEA [None]
  - DYSPNOEA EXERTIONAL [None]
  - CORONARY ARTERY BYPASS [None]
  - CARDIAC MURMUR [None]
  - ESSENTIAL HYPERTENSION [None]
  - VARICOSE VEIN [None]
  - SYNCOPE [None]
  - RESPIRATORY DISTRESS [None]
  - PRESYNCOPE [None]
  - WOUND [None]
  - GRANULOMA [None]
  - OSTEOARTHRITIS [None]
  - THINKING ABNORMAL [None]
  - DIAGNOSTIC PROCEDURE [None]
  - SURGERY [None]
  - CARDIOMEGALY [None]
  - HYPERLIPIDAEMIA [None]
  - ASTHENIA [None]
  - DIZZINESS [None]
  - SWELLING [None]
  - PALPITATIONS [None]
  - NERVOUSNESS [None]
  - OEDEMA [None]
  - CATHETERISATION CARDIAC ABNORMAL [None]
  - SCHIZOPHRENIA, PARANOID TYPE [None]
  - BRAIN NATRIURETIC PEPTIDE INCREASED [None]
  - BREATH SOUNDS ABNORMAL [None]
  - PULMONARY OEDEMA [None]
  - FALL [None]
  - BRADYCARDIA [None]
  - PULMONARY MASS [None]
  - HIATUS HERNIA [None]
  - INJURY [None]
  - ARTERIOSCLEROSIS CORONARY ARTERY [None]
  - CHOLELITHIASIS [None]
  - AGITATION [None]
  - CHEST PAIN [None]
  - ANGINA PECTORIS [None]
  - MUSCLE SPASMS [None]
  - TRANSIENT ISCHAEMIC ATTACK [None]
  - STOMATITIS [None]
  - LOSS OF CONSCIOUSNESS [None]
  - SALIVARY GLAND MASS [None]
  - RECTAL HAEMORRHAGE [None]
  - ADENOMA BENIGN [None]
  - GASTRITIS [None]
  - LEFT VENTRICULAR DYSFUNCTION [None]
  - DISTURBANCE IN ATTENTION [None]
  - ECHOCARDIOGRAM ABNORMAL [None]
  - LEFT ATRIAL DILATATION [None]
  - MIOSIS [None]
  - OBSTRUCTIVE AIRWAYS DISORDER [None]
  - ECONOMIC PROBLEM [None]
  - RENAL CYST [None]
  - GASTROINTESTINAL HAEMORRHAGE [None]
  - CARDIOMYOPATHY [None]
  - COUGH [None]
  - SOMNOLENCE [None]
  - OXYGEN SATURATION [None]
  - OEDEMA PERIPHERAL [None]
  - HYPOTENSION [None]
  - PLEURAL FIBROSIS [None]
  - DYSKINESIA [None]
  - ACCIDENTAL EXPOSURE [None]
  - RESTLESSNESS [None]
  - CONSTIPATION [None]
  - HEMIPARESIS [None]
  - CEREBRAL INFARCTION [None]
  - VIITH NERVE PARALYSIS [None]
  - GASTROOESOPHAGEAL REFLUX DISEASE [None]
  - DUODENITIS [None]
  - ELECTROCARDIOGRAM ABNORMAL [None]
  - DILATATION VENTRICULAR [None]
  - BRAIN SCAN ABNORMAL [None]
  - NEOPLASM PROSTATE [None]
  - CARDIAC MALPOSITION [None]
  - CONDUCTION DISORDER [None]
  - SPINAL OSTEOARTHRITIS [None]
  - LUNG INFILTRATION [None]
  - ARTERIOSCLEROSIS [None]
  - PLEURAL EFFUSION [None]
  - CORONARY ARTERY DISEASE [None]
  - IMPLANTABLE DEFIBRILLATOR INSERTION [None]
  - DEVICE MALFUNCTION [None]
  - SLEEP APNOEA SYNDROME [None]
  - HYPOAESTHESIA [None]
  - ARRHYTHMIA [None]
  - ASTHMA [None]
  - HYPOKINESIA [None]
  - DYSPEPSIA [None]
  - HYPERCHOLESTEROLAEMIA [None]
  - SLEEP DISORDER [None]
  - ANXIETY [None]
  - CARDIAC PACEMAKER INSERTION [None]
  - WEIGHT DECREASED [None]
  - ATRIAL FIBRILLATION [None]
  - ISCHAEMIC CARDIOMYOPATHY [None]
  - BLOOD CREATININE INCREASED [None]
  - ATRIAL FLUTTER [None]
  - FATIGUE [None]
  - EPIGASTRIC DISCOMFORT [None]
  - PSYCHOTIC DISORDER [None]
  - MENTAL STATUS CHANGES [None]
  - CEREBRAL SMALL VESSEL ISCHAEMIC DISEASE [None]
  - PNEUMONIA [None]
  - RALES [None]
  - VENTRICULAR TACHYCARDIA [None]
  - ORTHOPNOEA [None]
  - BUNDLE BRANCH BLOCK LEFT [None]
  - SNORING [None]
  - DISORIENTATION [None]
  - CARDIAC FAILURE CONGESTIVE [None]
  - RADIOTHERAPY [None]
  - NAUSEA [None]
  - MAJOR DEPRESSION [None]
  - DISEASE PROGRESSION [None]
  - AKINESIA [None]
  - CARDIAC VALVE DISEASE [None]
  - CHRONIC OBSTRUCTIVE PULMONARY DISEASE [None]
  - GOUT [None]
  - TOOTH LOSS [None]
  - VENTRICULAR EXTRASYSTOLES [None]
  - SUPRAVENTRICULAR TACHYCARDIA [None]
  - INVESTIGATION ABNORMAL [None]
  - BODY TEMPERATURE DECREASED [None]
  - PULMONARY VASCULAR DISORDER [None]
  - ILL-DEFINED DISORDER [None]
  - INTERVERTEBRAL DISC DISORDER [None]
  - HYPERTENSION [None]
  - CHEST DISCOMFORT [None]
  - MYOCARDIAL INFARCTION [None]
  - PROSTATE CANCER [None]
  - DEPRESSION [None]
  - RENAL FAILURE [None]
  - PAIN IN EXTREMITY [None]
  - DEMENTIA [None]
  - FACIAL PARESIS [None]
  - PULMONARY HYPERTENSION [None]
